FAERS Safety Report 15131417 (Version 3)
Quarter: 2018Q3

REPORT INFORMATION
  Report Type: Spontaneous
  Country: EE (occurrence: EE)
  Receive Date: 20180711
  Receipt Date: 20180731
  Transmission Date: 20181010
  Serious: Yes (Death, Other)
  Sender: FDA-Public Use
  Company Number: EE-009507513-1807EST003179

PATIENT
  Age: 88 Year
  Sex: Male
  Weight: 75 kg

DRUGS (2)
  1. KEYTRUDA [Suspect]
     Active Substance: PEMBROLIZUMAB
     Indication: LUNG CANCER METASTATIC
     Dosage: STRENGTH: 25 MG/ML, 2 VIALS, 200 MG
     Dates: start: 20180322
  2. KEYTRUDA [Suspect]
     Active Substance: PEMBROLIZUMAB
     Dosage: STRENGTH: 25 MG/ML, 2 VIALS, 200 MG
     Dates: start: 20180417

REACTIONS (1)
  - Sudden death [Fatal]

NARRATIVE: CASE EVENT DATE: 20180507
